FAERS Safety Report 5059594-8 (Version None)
Quarter: 2006Q3

REPORT INFORMATION
  Report Type: 
  Country: None (occurrence: None)
  Receive Date: 20060718
  Receipt Date: 20060630
  Transmission Date: 20061208
  Serious: Yes (Death, Other)
  Sender: FDA-Public Use
  Company Number: US200605001906

PATIENT
  Age: 38 Year
  Sex: Female

DRUGS (1)
  1. HUMALOG (LISPRO)VIAL [Suspect]
     Dosage: SUB, PUMP
     Route: 058
     Dates: end: 20051010

REACTIONS (4)
  - CARDIAC DISORDER [None]
  - DIABETIC NEPHROPATHY [None]
  - DIALYSIS [None]
  - RENAL TRANSPLANT [None]
